FAERS Safety Report 8410450-4 (Version None)
Quarter: 2012Q2

REPORT INFORMATION
  Report Type: 
  Country: None (occurrence: None)
  Receive Date: 20120529
  Receipt Date: 20060209
  Transmission Date: 20120825
  Serious: Yes (Hospitalization)
  Sender: FDA-Public Use
  Company Number: 15691-USA-06-0459

PATIENT
  Age: 61 Year
  Sex: Male

DRUGS (17)
  1. TOLVAPTAN (TOLVAPTAN(V4.1)) 30MG [Suspect]
     Indication: CARDIAC FAILURE CONGESTIVE
     Dosage: 30 MG, QD, ORAL
     Route: 048
     Dates: start: 20050620
  2. METALAZONE (METOLAZONE) [Concomitant]
  3. ALDACTONE [Concomitant]
  4. DIGOXIN [Concomitant]
  5. HEPARIN [Concomitant]
  6. COLACE (DOCUSATE SODIUM) [Concomitant]
  7. RENAGEL [Concomitant]
  8. LASIX [Concomitant]
  9. AMBIEN [Concomitant]
  10. ASPIRIN [Concomitant]
  11. COREG [Concomitant]
  12. NEXIUM [Concomitant]
  13. ZOCOR [Concomitant]
  14. ALBUTEROL AND ATROVENT (SALBUTAMOL, IPRATROPIUM) [Concomitant]
  15. DARVOCET-N (PARACETAMOL, DEXTROPROPOXYPHENE NAPSILATE) [Concomitant]
  16. ENALAPRIL MALEATE [Concomitant]
  17. LANTUS [Concomitant]

REACTIONS (2)
  - HYPERKALAEMIA [None]
  - RENAL FAILURE [None]
